FAERS Safety Report 4422367-0 (Version None)
Quarter: 2004Q3

REPORT INFORMATION
  Report Type: 
  Country: None (occurrence: None)
  Receive Date: 20040810
  Receipt Date: 20040729
  Transmission Date: 20050211
  Serious: Yes (Hospitalization)
  Sender: FDA-Public Use
  Company Number: GB-JNJFOC-20040707959

PATIENT
  Sex: Female

DRUGS (9)
  1. REMICADE [Suspect]
     Indication: RHEUMATOID ARTHRITIS
     Route: 042
  2. METHOTREXATE [Concomitant]
  3. FOLIC ACID [Concomitant]
  4. PARACETAMOL [Concomitant]
  5. CALCICHEW [Concomitant]
  6. PREDNISOLONE [Concomitant]
  7. ALENDRONATE SODIUM [Concomitant]
  8. THYROXINE [Concomitant]
  9. BENDROFLUAZIDE [Concomitant]

REACTIONS (4)
  - ANAPHYLACTIC REACTION [None]
  - BACK PAIN [None]
  - FLUSHING [None]
  - MALAISE [None]
